FAERS Safety Report 7222894-7 (Version None)
Quarter: 2011Q1

REPORT INFORMATION
  Report Type: 
  Country: None (occurrence: None)
  Receive Date: 20110112
  Receipt Date: 20110106
  Transmission Date: 20110831
  Serious: Yes (Death)
  Sender: FDA-Public Use
  Company Number: US-JNJFOC-20110101728

PATIENT
  Age: 25 Year
  Sex: Female

DRUGS (5)
  1. SSRI [Suspect]
     Indication: ILL-DEFINED DISORDER
  2. ACETAMINOPHEN [Suspect]
     Route: 048
  3. ANTIDEPRESSANT [Suspect]
     Indication: ILL-DEFINED DISORDER
  4. ACETAMINOPHEN [Suspect]
     Indication: ILL-DEFINED DISORDER
     Route: 048
  5. BENZODIAZEPINE NOS [Suspect]
     Indication: ILL-DEFINED DISORDER

REACTIONS (2)
  - TOXICITY TO VARIOUS AGENTS [None]
  - COMPLETED SUICIDE [None]
